FAERS Safety Report 10606090 (Version 2)
Quarter: 2015Q1

REPORT INFORMATION
  Report Type: Report from Study
  Country: DE (occurrence: FR)
  Receive Date: 20141125
  Receipt Date: 20150126
  Transmission Date: 20150720
  Serious: Yes (Death)
  Sender: FDA-Public Use
  Company Number: FR-ACTELION-A-CH2014-108255

PATIENT

DRUGS (1)
  1. VENTAVIS [Suspect]
     Active Substance: ILOPROST
     Indication: PULMONARY HYPERTENSION
     Dosage: 2.5 ?G, Q4HRS
     Route: 055

REACTIONS (2)
  - Cardiac failure [Fatal]
  - Disease progression [Fatal]
